FAERS Safety Report 19620139 (Version 1)
Quarter: 2021Q3

REPORT INFORMATION
  Report Type: Spontaneous
  Country: US (occurrence: US)
  Receive Date: 20210727
  Receipt Date: 20210727
  Transmission Date: 20211014
  Serious: Yes (Other)
  Sender: FDA-Public Use
  Company Number: None

PATIENT
  Age: 51 Year
  Sex: Female

DRUGS (1)
  1. SILDENAFIL. [Suspect]
     Active Substance: SILDENAFIL
     Indication: MULTIPLE SCLEROSIS
     Dosage: ?          OTHER FREQUENCY:2 TAB 3X DAILY;?
     Route: 048
     Dates: start: 20161011

REACTIONS (3)
  - Fall [None]
  - Condition aggravated [None]
  - Dysstasia [None]

NARRATIVE: CASE EVENT DATE: 20210727
